FAERS Safety Report 22135094 (Version 1)
Quarter: 2023Q1

REPORT INFORMATION
  Report Type: Spontaneous
  Country: AU (occurrence: AU)
  Receive Date: 20230324
  Receipt Date: 20230324
  Transmission Date: 20230418
  Serious: Yes (Other)
  Sender: FDA-Public Use
  Company Number: AU-drreddys-SPO/AUS/23/0162835

PATIENT
  Age: 36 Year
  Sex: Male

DRUGS (5)
  1. CAPECITABINE [Suspect]
     Active Substance: CAPECITABINE
     Indication: Product used for unknown indication
  2. LEUCOVORIN CALCIUM [Suspect]
     Active Substance: LEUCOVORIN CALCIUM
     Indication: Product used for unknown indication
  3. FLUOROURACIL [Suspect]
     Active Substance: FLUOROURACIL
     Indication: Product used for unknown indication
  4. LEFLUNOMIDE [Suspect]
     Active Substance: LEFLUNOMIDE
     Indication: Product used for unknown indication
  5. SUNITINIB [Suspect]
     Active Substance: SUNITINIB
     Indication: Product used for unknown indication

REACTIONS (4)
  - Malignant ascites [Unknown]
  - Metastases to central nervous system [Unknown]
  - Pancreatic neuroendocrine tumour metastatic [Unknown]
  - Product use in unapproved indication [Unknown]
